FAERS Safety Report 22272248 (Version 2)
Quarter: 2023Q2

REPORT INFORMATION
  Report Type: Spontaneous
  Country: DE (occurrence: DE)
  Receive Date: 20230502
  Receipt Date: 20230511
  Transmission Date: 20230721
  Serious: Yes (Other)
  Sender: FDA-Public Use
  Company Number: DE-BAYER-2023A058133

PATIENT
  Age: 70 Year
  Sex: Male

DRUGS (1)
  1. XARELTO [Suspect]
     Active Substance: RIVAROXABAN
     Indication: Infarction
     Dosage: 20 MG, UNK
     Route: 048

REACTIONS (1)
  - Coagulation test abnormal [Unknown]

NARRATIVE: CASE EVENT DATE: 20230101
